FAERS Safety Report 5203631-4 (Version None)
Quarter: 2007Q1

REPORT INFORMATION
  Report Type: 
  Country: None (occurrence: None)
  Receive Date: 20070105
  Receipt Date: 20061227
  Transmission Date: 20070707
  Serious: Yes (Life-Threatening, Hospitalization)
  Sender: FDA-Public Use
  Company Number: APP200600317

PATIENT
  Age: 3 Week
  Sex: Male

DRUGS (1)
  1. AMPICILLIN [Suspect]
     Indication: SEPSIS
     Dosage: (220 MG, ONCE), INTRAVENOUS
     Route: 042
     Dates: start: 20061220, end: 20061220

REACTIONS (2)
  - ANAPHYLACTIC REACTION [None]
  - NEONATAL RESPIRATORY ARREST [None]
